FAERS Safety Report 23387079 (Version 1)
Quarter: 2024Q1

REPORT INFORMATION
  Report Type: Spontaneous
  Country: US (occurrence: None)
  Receive Date: 20240109
  Receipt Date: 20240109
  Transmission Date: 20240410
  Serious: Yes (unspecified)
  Sender: FDA-Public Use
  Company Number: None

PATIENT
  Age: 40 Year
  Sex: Male

DRUGS (2)
  1. DIMETHYL FUMARATE [Suspect]
     Active Substance: DIMETHYL FUMARATE
     Indication: Multiple sclerosis
     Dosage: FREQUENCY : TWICE A DAY;?
     Route: 048
  2. carbamepine [Concomitant]
     Dates: start: 20230601, end: 20231030

REACTIONS (2)
  - White blood cell count decreased [None]
  - Laboratory test abnormal [None]

NARRATIVE: CASE EVENT DATE: 20231030
